FAERS Safety Report 11248814 (Version 2)
Quarter: 2015Q3

REPORT INFORMATION
  Report Type: Spontaneous
  Country: US (occurrence: US)
  Receive Date: 20150708
  Receipt Date: 20150803
  Transmission Date: 20151125
  Serious: No
  Sender: FDA-Public Use
  Company Number: US-ELI_LILLY_AND_COMPANY-US201012002741

PATIENT
  Age: 15 Year
  Sex: Male

DRUGS (2)
  1. PROZAC [Suspect]
     Active Substance: FLUOXETINE HYDROCHLORIDE
     Indication: IRRITABILITY
  2. STRATTERA [Suspect]
     Active Substance: ATOMOXETINE HYDROCHLORIDE
     Indication: ATTENTION DEFICIT/HYPERACTIVITY DISORDER
     Dosage: 60 MG, UNK

REACTIONS (4)
  - Depressed mood [Recovered/Resolved]
  - Anhedonia [Recovered/Resolved]
  - Social avoidant behaviour [Recovered/Resolved]
  - Off label use [Unknown]
